FAERS Safety Report 11653313 (Version 2)
Quarter: 2015Q4

REPORT INFORMATION
  Report Type: Spontaneous
  Country: US (occurrence: US)
  Receive Date: 20151022
  Receipt Date: 20151022
  Transmission Date: 20160304
  Serious: Yes (Hospitalization)
  Sender: FDA-Public Use
  Company Number: US-JNJFOC-20150714214

PATIENT
  Age: 73 Year
  Sex: Male

DRUGS (6)
  1. SIMVASTATIN. [Concomitant]
     Active Substance: SIMVASTATIN
     Indication: HYPERLIPIDAEMIA
     Route: 048
     Dates: start: 20141121
  2. PANTOPRAZOLE [Concomitant]
     Active Substance: PANTOPRAZOLE SODIUM
     Indication: GASTROOESOPHAGEAL REFLUX DISEASE
     Route: 048
     Dates: start: 20141121
  3. IMBRUVICA [Suspect]
     Active Substance: IBRUTINIB
     Indication: MANTLE CELL LYMPHOMA
     Route: 048
     Dates: start: 20141124
  4. ASPIRIN. [Concomitant]
     Active Substance: ASPIRIN
  5. XARELTO [Concomitant]
     Active Substance: RIVAROXABAN
  6. METOPROLOL [Concomitant]
     Active Substance: METOPROLOL

REACTIONS (5)
  - Muscle spasms [Unknown]
  - Pleural effusion [Recovered/Resolved]
  - Pollakiuria [Unknown]
  - Oedema peripheral [Unknown]
  - Pericardial effusion [Recovered/Resolved]

NARRATIVE: CASE EVENT DATE: 20150620
